FAERS Safety Report 4503385-0 (Version None)
Quarter: 2004Q4

REPORT INFORMATION
  Report Type: 
  Country: None (occurrence: None)
  Receive Date: 20041117
  Receipt Date: 19980511
  Transmission Date: 20050328
  Serious: Yes (Other)
  Sender: FDA-Public Use
  Company Number: GB-GLAXOSMITHKLINE-B0056436A

PATIENT
  Sex: Female

DRUGS (6)
  1. ONDANSETRON [Suspect]
     Indication: NAUSEA
     Dosage: 16MG PER DAY
     Route: 042
     Dates: start: 19980227, end: 19980228
  2. ENOXAPARIN [Concomitant]
     Indication: HYPERCOAGULATION
     Dosage: 40MG PER DAY
     Route: 058
     Dates: start: 19980223, end: 19980306
  3. CIPROFLOXACIN [Concomitant]
     Indication: INFECTION
     Dosage: 1000MG PER DAY
     Route: 048
     Dates: start: 19980223, end: 19980303
  4. ISOFLURANE [Concomitant]
     Indication: ANAESTHESIA
     Route: 055
  5. PROPOFOL [Concomitant]
     Indication: ANAESTHESIA
     Route: 042
  6. KETOROLAC [Concomitant]
     Indication: ANAESTHESIA
     Route: 042

REACTIONS (8)
  - BLINDNESS [None]
  - CHEST DISCOMFORT [None]
  - CYANOSIS [None]
  - DYSPNOEA [None]
  - FEELING ABNORMAL [None]
  - HYPERHIDROSIS [None]
  - PARAESTHESIA [None]
  - PULSE PRESSURE DECREASED [None]
